FAERS Safety Report 16032009 (Version 1)
Quarter: 2019Q1

REPORT INFORMATION
  Report Type: Report from Study
  Country: IN (occurrence: IN)
  Receive Date: 20190304
  Receipt Date: 20190304
  Transmission Date: 20190418
  Serious: Yes (Death, Hospitalization)
  Sender: FDA-Public Use
  Company Number: PHHY2019IN030984

PATIENT
  Age: 26 Year
  Sex: Male

DRUGS (1)
  1. TASIGNA [Suspect]
     Active Substance: NILOTINIB
     Indication: CHRONIC MYELOID LEUKAEMIA
     Dosage: 400 MG, BID
     Route: 048
     Dates: start: 20190205

REACTIONS (5)
  - Death [Fatal]
  - Pyrexia [Unknown]
  - Peripheral swelling [Unknown]
  - Dyspnoea [Unknown]
  - Gastric disorder [Unknown]

NARRATIVE: CASE EVENT DATE: 201902
